FAERS Safety Report 10692799 (Version 3)
Quarter: 2015Q1

REPORT INFORMATION
  Report Type: Spontaneous
  Country: JP (occurrence: JP)
  Receive Date: 20150106
  Receipt Date: 20150130
  Transmission Date: 20150720
  Serious: Yes (Hospitalization, Other)
  Sender: FDA-Public Use
  Company Number: JP-NOVOPROD-432977

PATIENT
  Age: 72 Year
  Sex: Male
  Weight: 49 kg

DRUGS (4)
  1. VICTOZA [Suspect]
     Active Substance: LIRAGLUTIDE
     Indication: TYPE 2 DIABETES MELLITUS
     Dosage: 0.30 MG, QD
     Route: 058
     Dates: start: 20141212, end: 20141214
  2. WARFARIN [Suspect]
     Active Substance: WARFARIN
     Indication: PRODUCT USED FOR UNKNOWN INDICATION
     Dosage: 2 TAB, QD (2 MG)
     Route: 048
     Dates: start: 20141114, end: 20141214
  3. NEXIUM [Concomitant]
     Active Substance: ESOMEPRAZOLE MAGNESIUM
     Indication: GASTROOESOPHAGEAL REFLUX DISEASE
     Dosage: 10 MG
     Route: 048
     Dates: start: 20140430
  4. MICAMLO [Concomitant]
     Active Substance: AMLODIPINE BESYLATE\TELMISARTAN
     Indication: HYPERTENSION
     Dosage: 1 TAB
     Route: 048
     Dates: start: 20130107, end: 20141215

REACTIONS (1)
  - International normalised ratio increased [Recovered/Resolved with Sequelae]

NARRATIVE: CASE EVENT DATE: 20141214
